FAERS Safety Report 5938012-9 (Version None)
Quarter: 2008Q4

REPORT INFORMATION
  Report Type: 
  Country: None (occurrence: None)
  Receive Date: 20081031
  Receipt Date: 20081020
  Transmission Date: 20090506
  Serious: Yes (Other)
  Sender: FDA-Public Use
  Company Number: US-PFIZER INC-2008083613

PATIENT
  Age: 80 Year
  Sex: Male
  Weight: 86.363 kg

DRUGS (2)
  1. REVATIO [Suspect]
     Indication: PULMONARY HYPERTENSION
     Dates: start: 20080701, end: 20080801
  2. INSULIN [Concomitant]

REACTIONS (1)
  - FLUID RETENTION [None]
